FAERS Safety Report 8052603-3 (Version None)
Quarter: 2012Q1

REPORT INFORMATION
  Report Type: 
  Country: None (occurrence: None)
  Receive Date: 20120111
  Receipt Date: 20110919
  Transmission Date: 20120608
  Serious: Yes (Other)
  Sender: FDA-Public Use
  Company Number: EG-IGSA-IG1003

PATIENT
  Age: 54 Year
  Sex: Female
  Weight: 85 kg

DRUGS (6)
  1. FLEBOGAMMA 5% [Suspect]
     Dosage: 120 G TOTAL
     Route: 042
     Dates: start: 20110803, end: 20110806
  2. TACROLIMUS (ADVAGRAF 5MG 30 CAPSULAS DURAS LIBER PRO, ASTELLAS PHARMA, [Suspect]
     Indication: RENAL TRANSPLANT
     Route: 048
     Dates: start: 20110802
  3. TIMOGLOBULIN (TIMOGLOBULINA, 1 VIAL DE POLVO LIOFILIZADO, GENZYME, S.L [Suspect]
     Dosage: 400 MG TOTAL
     Route: 042
     Dates: start: 20110803, end: 20110806
  4. PROPOFOL [Suspect]
     Indication: ANAESTHESIA
     Route: 042
     Dates: start: 20110803
  5. FENTANYL [Suspect]
     Indication: ANAESTHESIA
     Route: 042
     Dates: start: 20110803
  6. MYFORTIC [Suspect]
     Indication: RENAL TRANSPLANT
     Route: 048
     Dates: start: 20110729

REACTIONS (3)
  - CYTOMEGALOVIRUS TEST POSITIVE [None]
  - PANCREATITIS ACUTE [None]
  - DEVICE OCCLUSION [None]
